FAERS Safety Report 9714219 (Version 2)
Quarter: 2015Q3

REPORT INFORMATION
  Report Type: Spontaneous
  Country: US (occurrence: US)
  Receive Date: 20131126
  Receipt Date: 20150803
  Transmission Date: 20151125
  Serious: No
  Sender: FDA-Public Use
  Company Number: US-GILEAD-2008-0019401

PATIENT
  Age: 21 Year
  Sex: Female
  Weight: 45.36 kg

DRUGS (7)
  1. ZANTAC [Concomitant]
     Active Substance: RANITIDINE HYDROCHLORIDE
  2. TYLENOL 8 HR [Concomitant]
     Active Substance: ACETAMINOPHEN
  3. LETAIRIS [Suspect]
     Active Substance: AMBRISENTAN
     Indication: PULMONARY ARTERIAL HYPERTENSION
     Route: 048
     Dates: start: 20080823
  4. REVATIO [Concomitant]
     Active Substance: SILDENAFIL CITRATE
  5. COUMADIN [Concomitant]
     Active Substance: WARFARIN SODIUM
  6. SPIRONOLACTONE. [Concomitant]
     Active Substance: SPIRONOLACTONE
  7. DEPO-PROVERA INJ [Concomitant]

REACTIONS (3)
  - Palpitations [None]
  - Abdominal pain upper [None]
  - Sinus disorder [None]
